FAERS Safety Report 24433997 (Version 1)
Quarter: 2024Q4

REPORT INFORMATION
  Report Type: Spontaneous
  Country: GB (occurrence: GB)
  Receive Date: 20241014
  Receipt Date: 20241014
  Transmission Date: 20250114
  Serious: Yes (Hospitalization, Other)
  Sender: TEVA
  Company Number: None

PATIENT
  Age: 58 Year

DRUGS (11)
  1. PACLITAXEL [Suspect]
     Active Substance: PACLITAXEL
     Route: 065
  2. MORPHINE [Concomitant]
     Active Substance: MORPHINE
     Dosage: MST CONTINUES
  3. MORPHINE [Concomitant]
     Active Substance: MORPHINE
     Dosage: MST CONTINUES. TDD 70 MG BD
  4. MORPHINE [Concomitant]
     Active Substance: MORPHINE
     Dosage: 10 MG / 5 ML ORAL SOLUTION 12.5 ML ( 25 MG) TO BE TAKEN EVERY THREE HOURS WHEN REQUIRED FOR PAIN-...
  5. PREGABALIN [Concomitant]
     Active Substance: PREGABALIN
  6. LANSOPRAZOLE [Concomitant]
     Active Substance: LANSOPRAZOLE
     Dosage: AT NIGHT
  7. CARBOPLATIN [Suspect]
     Active Substance: CARBOPLATIN
     Route: 065
  8. DOCUSATE [Concomitant]
     Active Substance: DOCUSATE
  9. BEVACIZUMAB [Suspect]
     Active Substance: BEVACIZUMAB
     Route: 065
  10. ANASTROZOLE [Concomitant]
     Active Substance: ANASTROZOLE
  11. SENNA [Concomitant]
     Active Substance: SENNA LEAF\SENNOSIDES\SENNOSIDES A AND B
     Dosage: AT NIGHT

REACTIONS (1)
  - Colitis [Unknown]
